FAERS Safety Report 5044629-9 (Version None)
Quarter: 2006Q2

REPORT INFORMATION
  Report Type: 
  Country: None (occurrence: None)
  Receive Date: 20060629
  Receipt Date: 20060619
  Transmission Date: 20061013
  Serious: Yes (Other)
  Sender: FDA-Public Use
  Company Number: L06-ITA-02573-02

PATIENT
  Age: 14 Year
  Sex: Female

DRUGS (3)
  1. CARBAMAZEPINE [Suspect]
     Indication: PARTIAL SEIZURES WITH SECONDARY GENERALISATION
  2. PRIMIDONE [Concomitant]
  3. ETHOSUXIMIDE [Concomitant]

REACTIONS (5)
  - ELECTROENCEPHALOGRAM ABNORMAL [None]
  - MYOCLONUS [None]
  - PARTIAL SEIZURES [None]
  - PETIT MAL EPILEPSY [None]
  - SOMNOLENCE [None]
